FAERS Safety Report 16440183 (Version 1)
Quarter: 2019Q2

REPORT INFORMATION
  Report Type: Spontaneous
  Country: NL (occurrence: NL)
  Receive Date: 20190617
  Receipt Date: 20190617
  Transmission Date: 20190711
  Serious: Yes (Life-Threatening, Hospitalization, Disabling)
  Sender: FDA-Public Use
  Company Number: NL-PFIZER INC-2019253113

PATIENT
  Age: 43 Year
  Sex: Female

DRUGS (8)
  1. ADEFOVIR DIPIVOXIL. [Concomitant]
     Active Substance: ADEFOVIR DIPIVOXIL
     Indication: HEPATITIS B
     Dosage: 10MG EVERY OTHER DAY
     Dates: start: 20011220, end: 20020929
  2. PREDNISON [Concomitant]
     Active Substance: PREDNISONE
     Dosage: 15MG
     Dates: start: 199910
  3. HYDROQUIN [Concomitant]
     Dosage: 300 MG, 1X/DAY
  4. CARNITENE [LEVOCARNITINE] [Concomitant]
     Dosage: 660 MG, 1X/DAY
     Dates: start: 20011220, end: 20020929
  5. MERCILON [Concomitant]
     Active Substance: DESOGESTREL\ETHINYL ESTRADIOL
     Dosage: UNK
     Dates: start: 199811
  6. LAMIVUDINE. [Concomitant]
     Active Substance: LAMIVUDINE
     Indication: HEPATITIS B
     Dosage: 50MG
     Dates: start: 20010710, end: 20020929
  7. RAPAMUNE [Suspect]
     Active Substance: SIROLIMUS
     Indication: LIVER TRANSPLANT
     Dosage: 6 MG, 1X/DAY
     Dates: start: 20020804, end: 20020929
  8. LANZOPRAZOL [Concomitant]
     Active Substance: LANSOPRAZOLE
     Dosage: 30 MG, 1X/DAY
     Dates: start: 199811

REACTIONS (4)
  - Pulmonary embolism [Not Recovered/Not Resolved]
  - Haemolytic uraemic syndrome [Recovering/Resolving]
  - Off label use [Unknown]
  - Product use in unapproved indication [Unknown]

NARRATIVE: CASE EVENT DATE: 20020804
